FAERS Safety Report 12848869 (Version 1)
Quarter: 2016Q4

REPORT INFORMATION
  Report Type: Spontaneous
  Country: BR (occurrence: BR)
  Receive Date: 20161014
  Receipt Date: 20161014
  Transmission Date: 20170207
  Serious: Yes (Other)
  Sender: FDA-Public Use
  Company Number: BR-BAYER-2016-197703

PATIENT
  Sex: Male

DRUGS (2)
  1. ASPIRINA [Suspect]
     Active Substance: ASPIRIN
  2. CARDURAN [Interacting]
     Active Substance: DOXAZOSIN MESYLATE

REACTIONS (2)
  - Blood pressure decreased [Unknown]
  - Drug interaction [Unknown]
